FAERS Safety Report 12712446 (Version 1)
Quarter: 2016Q3

REPORT INFORMATION
  Report Type: Spontaneous
  Country: CN (occurrence: CN)
  Receive Date: 20160902
  Receipt Date: 20160902
  Transmission Date: 20161109
  Serious: Yes (Hospitalization, Other)
  Sender: FDA-Public Use
  Company Number: CN-TAKEDA-2016MPI007652

PATIENT

DRUGS (2)
  1. VELCADE [Suspect]
     Active Substance: BORTEZOMIB
     Indication: PLASMA CELL MYELOMA
     Dosage: 1.3 MG/M2, UNK
     Route: 065
  2. DEXAMETHASONE. [Suspect]
     Active Substance: DEXAMETHASONE
     Indication: PLASMA CELL MYELOMA
     Dosage: 20 MG, UNK
     Route: 065

REACTIONS (15)
  - White blood cell count decreased [Recovered/Resolved]
  - Agranulocytosis [Recovered/Resolved]
  - Platelet count decreased [Unknown]
  - Respiratory failure [Unknown]
  - Haemoglobin decreased [Unknown]
  - Lung infection [Unknown]
  - Neuropathy peripheral [Unknown]
  - Ileus paralytic [Recovered/Resolved]
  - Upper respiratory tract infection [Unknown]
  - Blood glucose increased [Unknown]
  - Diarrhoea [Recovered/Resolved]
  - Anal infection [Unknown]
  - Urinary tract infection [Unknown]
  - Fatigue [Unknown]
  - Constipation [Recovered/Resolved]
